FAERS Safety Report 21680585 (Version 2)
Quarter: 2023Q1

REPORT INFORMATION
  Report Type: Spontaneous
  Country: BR (occurrence: None)
  Receive Date: 20221205
  Receipt Date: 20230124
  Transmission Date: 20230417
  Serious: Yes (Other)
  Sender: FDA-Public Use
  Company Number: BR-Merck Healthcare KGaA-9368961

PATIENT
  Sex: Female

DRUGS (5)
  1. GLIFAGE [Suspect]
     Active Substance: METFORMIN HYDROCHLORIDE
     Indication: Diabetes mellitus
     Dosage: USED 3 YEARS AGO
     Route: 048
  2. GLIFAGE [Suspect]
     Active Substance: METFORMIN HYDROCHLORIDE
     Route: 048
     Dates: start: 20220609
  3. JARDIANCE [Concomitant]
     Active Substance: EMPAGLIFLOZIN
     Indication: Diabetes mellitus
  4. PIOGLITAZONE HYDROCHLORIDE [Concomitant]
     Active Substance: PIOGLITAZONE HYDROCHLORIDE
     Indication: Diabetes mellitus
  5. GLIMEPIRIDE\METFORMIN [Concomitant]
     Active Substance: GLIMEPIRIDE\METFORMIN
     Indication: Diabetes mellitus

REACTIONS (7)
  - Syncope [Recovered/Resolved]
  - Orthognathic surgery [Unknown]
  - Dizziness [Recovered/Resolved]
  - Blood glucose increased [Unknown]
  - Pollakiuria [Recovered/Resolved]
  - Urine abnormality [Not Recovered/Not Resolved]
  - Drug ineffective [Unknown]
